FAERS Safety Report 10474631 (Version 7)
Quarter: 2018Q1

REPORT INFORMATION
  Report Type: Spontaneous
  Country: CA (occurrence: CA)
  Receive Date: 20140925
  Receipt Date: 20180315
  Transmission Date: 20180508
  Serious: Yes (Other)
  Sender: FDA-Public Use
  Company Number: CA-ROCHE-1464905

PATIENT
  Age: 58 Year
  Sex: Male

DRUGS (7)
  1. XOLAIR [Suspect]
     Active Substance: OMALIZUMAB
     Route: 058
     Dates: start: 20141106
  2. XOLAIR [Suspect]
     Active Substance: OMALIZUMAB
     Route: 058
     Dates: start: 20141120
  3. XOLAIR [Suspect]
     Active Substance: OMALIZUMAB
     Route: 058
     Dates: start: 201601, end: 201601
  4. XOLAIR [Suspect]
     Active Substance: OMALIZUMAB
     Indication: ASTHMA
     Route: 058
     Dates: start: 20130829
  5. XOLAIR [Suspect]
     Active Substance: OMALIZUMAB
     Route: 058
     Dates: start: 20131121
  6. XOLAIR [Suspect]
     Active Substance: OMALIZUMAB
     Route: 058
     Dates: start: 20140327
  7. SYMBICORT [Concomitant]
     Active Substance: BUDESONIDE\FORMOTEROL FUMARATE DIHYDRATE

REACTIONS (29)
  - Nasopharyngitis [Recovering/Resolving]
  - Increased tendency to bruise [Unknown]
  - Back pain [Unknown]
  - Rash erythematous [Unknown]
  - Joint stiffness [Unknown]
  - Blood pressure increased [Unknown]
  - Myalgia [Unknown]
  - Respiratory tract congestion [Recovering/Resolving]
  - Rash pruritic [Not Recovered/Not Resolved]
  - Injection site rash [Recovered/Resolved]
  - Oropharyngeal pain [Unknown]
  - Muscle spasms [Unknown]
  - Urticaria [Recovered/Resolved]
  - Injection site pain [Unknown]
  - Speech disorder [Unknown]
  - Rash [Recovered/Resolved]
  - Pain [Unknown]
  - Glossodynia [Unknown]
  - Pain in jaw [Unknown]
  - Polyp [Unknown]
  - Arthralgia [Unknown]
  - Peripheral swelling [Unknown]
  - Eye pain [Unknown]
  - Dry eye [Unknown]
  - Feeling abnormal [Unknown]
  - Dysphonia [Unknown]
  - Precancerous mucosal lesion [Unknown]
  - Injection site erythema [Unknown]
  - Neck pain [Unknown]

NARRATIVE: CASE EVENT DATE: 20140507
